FAERS Safety Report 12698664 (Version 1)
Quarter: 2016Q3

REPORT INFORMATION
  Report Type: Spontaneous
  Country: US (occurrence: US)
  Receive Date: 20160830
  Receipt Date: 20160830
  Transmission Date: 20161109
  Serious: No
  Sender: FDA-Public Use
  Company Number: US-PERRIGO-16US016499

PATIENT
  Sex: Female
  Weight: 51.25 kg

DRUGS (2)
  1. EVAMIST [Suspect]
     Active Substance: ESTRADIOL
     Indication: HOT FLUSH
  2. EVAMIST [Suspect]
     Active Substance: ESTRADIOL
     Indication: CONFUSIONAL STATE
     Dosage: 1.53 MG, QOD
     Route: 062

REACTIONS (3)
  - Off label use [Unknown]
  - Inappropriate schedule of drug administration [Unknown]
  - No adverse event [Unknown]
